FAERS Safety Report 9856977 (Version 2)
Quarter: 2014Q1

REPORT INFORMATION
  Report Type: Spontaneous
  Country: IT (occurrence: IT)
  Receive Date: 20140130
  Receipt Date: 20140321
  Transmission Date: 20141002
  Serious: Yes (Death)
  Sender: FDA-Public Use
  Company Number: PHHY2014IT008026

PATIENT
  Age: 77 Year
  Sex: Male
  Weight: 80 kg

DRUGS (4)
  1. ACETYLSALICYLIC ACID [Suspect]
     Indication: CEREBRAL ISCHAEMIA
     Dosage: 1 DF, QD
     Route: 048
     Dates: start: 20100101, end: 20140107
  2. ATENOLOL [Concomitant]
  3. AMILORIDE+HYDROCHLOORTHIAZIDE [Concomitant]
  4. ZOFENOPRIL CALCIUM [Concomitant]

REACTIONS (1)
  - Cerebral haemorrhage [Fatal]
